FAERS Safety Report 6579788-X (Version None)
Quarter: 2010Q1

REPORT INFORMATION
  Report Type: 
  Country: None (occurrence: None)
  Receive Date: 20100212
  Receipt Date: 20100203
  Transmission Date: 20100710
  Serious: Yes (Hospitalization)
  Sender: FDA-Public Use
  Company Number: GB-ROCHE-683481

PATIENT
  Age: 32 Year
  Sex: Male

DRUGS (4)
  1. PEGASYS [Suspect]
     Indication: HEPATITIS C
     Dosage: REPORTED AS PEG180
     Route: 065
  2. PEGASYS [Suspect]
     Route: 065
  3. COPEGUS [Suspect]
     Indication: HEPATITIS C
     Route: 065
  4. COPEGUS [Suspect]
     Route: 065

REACTIONS (5)
  - APPENDICECTOMY [None]
  - FACTOR VIII INHIBITION [None]
  - HAEMORRHAGE [None]
  - MALAISE [None]
  - VITELLO-INTESTINAL DUCT REMNANT [None]
